FAERS Safety Report 8835872 (Version 3)
Quarter: 2014Q1

REPORT INFORMATION
  Report Type: Spontaneous
  Country: US (occurrence: US)
  Receive Date: 20121011
  Receipt Date: 20140103
  Transmission Date: 20141002
  Serious: Yes (Other)
  Sender: FDA-Public Use
  Company Number: US-PFIZER INC-2012251015

PATIENT
  Age: 28 Year
  Sex: Male
  Weight: 72.56 kg

DRUGS (4)
  1. ZOLOFT [Suspect]
     Indication: DEPRESSION
     Dosage: 150 MG, 1X/DAY
     Route: 048
  2. ZOLOFT [Suspect]
     Indication: POST-TRAUMATIC STRESS DISORDER
  3. ZOLOFT [Suspect]
     Indication: PANIC DISORDER
  4. FLEXERIL [Suspect]
     Dosage: 100 MG, 2X/DAY

REACTIONS (8)
  - Dental caries [Unknown]
  - Tooth loss [Unknown]
  - Intervertebral disc degeneration [Unknown]
  - Dry mouth [Unknown]
  - Gingival disorder [Unknown]
  - Sensitivity of teeth [Unknown]
  - Toothache [Unknown]
  - Tooth infection [Unknown]
